FAERS Safety Report 6526438-4 (Version None)
Quarter: 2009Q4

REPORT INFORMATION
  Report Type: 
  Country: None (occurrence: None)
  Receive Date: 20091229
  Receipt Date: 20091217
  Transmission Date: 20100525
  Serious: Yes (Other)
  Sender: FDA-Public Use
  Company Number: 2009US000664

PATIENT
  Age: 41 Year
  Sex: Female
  Weight: 111 kg

DRUGS (2)
  1. PROTOPIC [Suspect]
     Indication: DRUG USE FOR UNKNOWN INDICATION
     Dosage: 0.1%, D
     Dates: start: 20020901, end: 20070801
  2. ELIDEL [Suspect]
     Indication: DRUG USE FOR UNKNOWN INDICATION
     Dosage: 1 % D
     Dates: start: 20020901, end: 20070801

REACTIONS (2)
  - BREAST CANCER STAGE II [None]
  - HODGKIN'S DISEASE NODULAR SCLEROSIS STAGE II SUPRADIAPHRAGMATIC [None]
